FAERS Safety Report 5628630-X (Version None)
Quarter: 2008Q1

REPORT INFORMATION
  Report Type: 
  Country: None (occurrence: None)
  Receive Date: 20080215
  Receipt Date: 20080205
  Transmission Date: 20080703
  Serious: Yes (Other)
  Sender: FDA-Public Use
  Company Number: NL-PFIZER INC-2008011782

PATIENT
  Sex: Female
  Weight: 78 kg

DRUGS (1)
  1. LIPITOR [Suspect]
     Indication: HYPERCHOLESTEROLAEMIA
     Dosage: FREQ:DAILY
     Route: 048
     Dates: start: 20000101, end: 20030101

REACTIONS (1)
  - POLYMYOSITIS [None]
